FAERS Safety Report 15523107 (Version 1)
Quarter: 2018Q4

REPORT INFORMATION
  Report Type: Spontaneous
  Country: FR (occurrence: FR)
  Receive Date: 20181017
  Receipt Date: 20181017
  Transmission Date: 20190205
  Serious: Yes (Hospitalization, Other)
  Sender: FDA-Public Use
  Company Number: PHHY2018FR128178

PATIENT
  Age: 66 Year
  Sex: Female

DRUGS (1)
  1. VOLTARENE (DICLOFENAC SODIUM) [Suspect]
     Active Substance: DICLOFENAC SODIUM
     Indication: OSTEOARTHRITIS
     Dosage: UNK
     Route: 048

REACTIONS (1)
  - Abdominal abscess [Recovered/Resolved with Sequelae]

NARRATIVE: CASE EVENT DATE: 20141110
